FAERS Safety Report 14413980 (Version 1)
Quarter: 2018Q1

REPORT INFORMATION
  Report Type: Spontaneous
  Country: US (occurrence: US)
  Receive Date: 20180118
  Receipt Date: 20180118
  Transmission Date: 20180509
  Serious: Yes (Life-Threatening, Hospitalization)
  Sender: FDA-Public Use
  Company Number: None

PATIENT
  Age: 61 Year
  Sex: Male

DRUGS (1)
  1. LISINOPRIL. [Suspect]
     Active Substance: LISINOPRIL
     Indication: HYPERTENSION
     Route: 048
     Dates: start: 20150607, end: 20180112

REACTIONS (6)
  - Lethargy [None]
  - Angioedema [None]
  - Swollen tongue [None]
  - Hypoxia [None]
  - Cardiac failure [None]
  - Respiratory failure [None]

NARRATIVE: CASE EVENT DATE: 20180112
